FAERS Safety Report 4559340-8 (Version None)
Quarter: 2005Q1

REPORT INFORMATION
  Report Type: 
  Country: None (occurrence: None)
  Receive Date: 20050124
  Receipt Date: 20050113
  Transmission Date: 20050727
  Serious: Yes (Other)
  Sender: FDA-Public Use
  Company Number: US-JNJFOC-20050104068

PATIENT
  Sex: Female

DRUGS (2)
  1. MOTRIN [Suspect]
  2. MOTRIN [Suspect]
     Indication: DRUG USE FOR UNKNOWN INDICATION
     Dosage: ^REGULAR DOSES OVER 16 YEARS^

REACTIONS (1)
  - NEPHROTIC SYNDROME [None]
